FAERS Safety Report 9459430 (Version 2)
Quarter: 2013Q3

REPORT INFORMATION
  Report Type: Report from Study
  Country: CA (occurrence: CA)
  Receive Date: 20130815
  Receipt Date: 20130826
  Transmission Date: 20140515
  Serious: Yes (Other)
  Sender: FDA-Public Use
  Company Number: CA-ROCHE-1260269

PATIENT
  Age: 50 Year
  Sex: Female
  Weight: 86 kg

DRUGS (9)
  1. ACTEMRA [Suspect]
     Indication: RHEUMATOID ARTHRITIS
     Route: 042
     Dates: start: 20130429
  2. ACTEMRA [Suspect]
     Route: 042
     Dates: start: 20130527
  3. ACTEMRA [Suspect]
     Route: 042
     Dates: start: 20130627, end: 20130627
  4. ESTRACE [Concomitant]
  5. CELEBREX [Concomitant]
  6. NEXIUM [Concomitant]
  7. ATASOL [Concomitant]
  8. HYDROMORPH CONTIN [Concomitant]
  9. ORENCIA [Concomitant]

REACTIONS (6)
  - Infection [Recovering/Resolving]
  - Pruritus [Recovering/Resolving]
  - Acne [Recovering/Resolving]
  - Arthralgia [Not Recovered/Not Resolved]
  - Drug ineffective [Unknown]
  - Hypersensitivity [Unknown]
